FAERS Safety Report 21844074 (Version 10)
Quarter: 2023Q1

REPORT INFORMATION
  Report Type: Report from Study
  Country: CN (occurrence: None)
  Receive Date: 20230110
  Receipt Date: 20230331
  Transmission Date: 20230418
  Serious: Yes (Hospitalization)
  Sender: FDA-Public Use
  Company Number: CN-ROCHE-3257753

PATIENT
  Age: 75 Year
  Sex: Male
  Weight: 61 kg

DRUGS (20)
  1. ATEZOLIZUMAB [Suspect]
     Active Substance: ATEZOLIZUMAB
     Indication: Oesophageal squamous cell carcinoma
     Dosage: START DATE OF MOST RECENT DOSE OF BLINDED ATEZOLIZUMAB PRIOR TO SAE/AE- 13-DEC-2022
     Route: 041
     Dates: start: 20221013
  2. TIRAGOLUMAB [Suspect]
     Active Substance: TIRAGOLUMAB
     Indication: Oesophageal squamous cell carcinoma
     Dosage: START DATE OF MOST RECENT DOSE OF BLINDED TIRAGOLUMAB PRIOR TO SAE/AE- 13-DEC-2022
     Route: 042
     Dates: start: 20221013
  3. LORNOXICAM [Concomitant]
     Active Substance: LORNOXICAM
     Indication: Non-cardiac chest pain
     Route: 042
     Dates: start: 20221226, end: 20221230
  4. ESOMEPRAZOLE MAGNESIUM [Concomitant]
     Active Substance: ESOMEPRAZOLE MAGNESIUM
     Route: 048
     Dates: start: 20220116
  5. MORPHINE HYDROCHLORIDE [Concomitant]
     Active Substance: MORPHINE HYDROCHLORIDE
     Indication: Non-cardiac chest pain
     Route: 058
     Dates: start: 20230107, end: 20230107
  6. MORPHINE HYDROCHLORIDE [Concomitant]
     Active Substance: MORPHINE HYDROCHLORIDE
     Route: 058
     Dates: start: 20230110, end: 20230110
  7. MORPHINE HYDROCHLORIDE [Concomitant]
     Active Substance: MORPHINE HYDROCHLORIDE
     Route: 058
     Dates: start: 20230117, end: 20230117
  8. ACETAMINOPHEN\DIHYDROCODEINE BITARTRATE [Concomitant]
     Active Substance: ACETAMINOPHEN\DIHYDROCODEINE BITARTRATE
     Indication: Non-cardiac chest pain
     Route: 048
     Dates: start: 20230109, end: 20230115
  9. ACETAMINOPHEN\DIHYDROCODEINE BITARTRATE [Concomitant]
     Active Substance: ACETAMINOPHEN\DIHYDROCODEINE BITARTRATE
     Indication: Cough
  10. TRAMADOL HYDROCHLORIDE [Concomitant]
     Active Substance: TRAMADOL HYDROCHLORIDE
     Indication: Non-cardiac chest pain
     Route: 048
     Dates: start: 20230110, end: 20230117
  11. TRAMADOL HYDROCHLORIDE [Concomitant]
     Active Substance: TRAMADOL HYDROCHLORIDE
     Route: 048
     Dates: start: 20230225
  12. ESOMEPRAZOLE [Concomitant]
     Active Substance: ESOMEPRAZOLE
     Route: 048
     Dates: start: 20230112
  13. ALMAGATE [Concomitant]
     Active Substance: ALMAGATE
     Route: 048
     Dates: start: 20230112, end: 20230117
  14. ALMAGATE [Concomitant]
     Active Substance: ALMAGATE
     Route: 048
     Dates: start: 20230207, end: 20230215
  15. FAMOTIDINE [Concomitant]
     Active Substance: FAMOTIDINE
     Indication: Gastritis
     Route: 042
     Dates: start: 20230219, end: 20230225
  16. THYMOPENTIN [Concomitant]
     Active Substance: THYMOPENTIN
     Route: 042
     Dates: start: 20230219, end: 20230225
  17. LACTULOSE [Concomitant]
     Active Substance: LACTULOSE
     Indication: Constipation
     Route: 048
     Dates: start: 20230219
  18. GENTAMICIN SULFATE [Concomitant]
     Active Substance: GENTAMICIN SULFATE
     Indication: Urinary tract infection
     Dosage: 80000 U
     Dates: start: 20230220, end: 20230220
  19. PROMETHAZINE HYDROCHLORIDE [Concomitant]
     Active Substance: PROMETHAZINE HYDROCHLORIDE
     Indication: Antiallergic therapy
     Route: 030
     Dates: start: 20230220, end: 20230220
  20. BISMUTH [Concomitant]
     Active Substance: BISMUTH
     Indication: Gastritis
     Route: 048
     Dates: start: 20230223

REACTIONS (1)
  - Pneumonia [Not Recovered/Not Resolved]

NARRATIVE: CASE EVENT DATE: 20221226
